FAERS Safety Report 9218166 (Version 1)
Quarter: 2013Q2

REPORT INFORMATION
  Report Type: Spontaneous
  Country: US (occurrence: US)
  Receive Date: 20130408
  Receipt Date: 20130408
  Transmission Date: 20140414
  Serious: No
  Sender: FDA-Public Use
  Company Number: US-009507513-1304USA003458

PATIENT
  Sex: Male

DRUGS (2)
  1. MIRALAX [Suspect]
     Indication: PRODUCT USED FOR UNKNOWN INDICATION
     Dosage: 1 DF, ONCE
     Route: 048
     Dates: start: 20130318
  2. MIRALAX [Suspect]
     Dosage: 1 DF, ONCE
     Route: 048
     Dates: start: 20130319

REACTIONS (1)
  - Inappropriate schedule of drug administration [Unknown]
